FAERS Safety Report 12737419 (Version 1)
Quarter: 2016Q3

REPORT INFORMATION
  Report Type: Spontaneous
  Country: JP (occurrence: JP)
  Receive Date: 20160912
  Receipt Date: 20160912
  Transmission Date: 20161109
  Serious: Yes (Other)
  Sender: FDA-Public Use
  Company Number: JP-REGENERON PHARMACEUTICALS, INC.-2016-20281

PATIENT

DRUGS (1)
  1. EYLEA [Suspect]
     Active Substance: AFLIBERCEPT
     Indication: POLYPOIDAL CHOROIDAL VASCULOPATHY
     Dosage: UNK
     Route: 031
     Dates: start: 2014

REACTIONS (1)
  - Vitreous haemorrhage [Recovered/Resolved]

NARRATIVE: CASE EVENT DATE: 2014
